FAERS Safety Report 20469120 (Version 8)
Quarter: 2023Q1

REPORT INFORMATION
  Report Type: Report from Study
  Country: CA (occurrence: CA)
  Receive Date: 20220214
  Receipt Date: 20230127
  Transmission Date: 20230417
  Serious: Yes (Other)
  Sender: FDA-Public Use
  Company Number: CA-JNJFOC-20210853741

PATIENT
  Age: 28 Year
  Sex: Female

DRUGS (2)
  1. REMICADE [Suspect]
     Active Substance: INFLIXIMAB
     Indication: Crohn^s disease
     Dosage: THERAPY START DATE: 09/SEP/2016
     Route: 042
     Dates: start: 20140506
  2. KEFLEX [Suspect]
     Active Substance: CEPHALEXIN
     Indication: Urinary tract infection
     Route: 065
     Dates: start: 2021, end: 20211204

REACTIONS (10)
  - Breast abscess [Not Recovered/Not Resolved]
  - Mastitis [Recovered/Resolved]
  - Morning sickness [Recovering/Resolving]
  - Exposure during pregnancy [Recovered/Resolved]
  - Caesarean section [Unknown]
  - Premature labour [Unknown]
  - Urinary tract infection [Recovered/Resolved]
  - Fungal skin infection [Recovered/Resolved]
  - SARS-CoV-2 test positive [Recovered/Resolved]
  - Musculoskeletal chest pain [Recovered/Resolved]

NARRATIVE: CASE EVENT DATE: 20210101
